FAERS Safety Report 21878771 (Version 5)
Quarter: 2025Q2

REPORT INFORMATION
  Report Type: Spontaneous
  Country: US (occurrence: US)
  Receive Date: 20230118
  Receipt Date: 20250418
  Transmission Date: 20250717
  Serious: Yes (Other)
  Sender: PFIZER
  Company Number: US-PFIZER INC-202300022134

PATIENT
  Age: 68 Year
  Sex: Male
  Weight: 79.38 kg

DRUGS (7)
  1. VYNDAMAX [Suspect]
     Active Substance: TAFAMIDIS
     Indication: Cardiac amyloidosis
     Dosage: 61 MG, 1X/DAY
     Route: 048
     Dates: start: 2021
  2. VYNDAMAX [Suspect]
     Active Substance: TAFAMIDIS
     Indication: Cardiac failure chronic
  3. BUMETANIDE [Concomitant]
     Active Substance: BUMETANIDE
     Indication: Fluid imbalance
     Dosage: 4 MG, 2X/DAY (4 IN THE MORNING AND 4 IN THE AFTERNOON)
  4. POTASSIUM CHLORIDE [Concomitant]
     Active Substance: POTASSIUM CHLORIDE
     Dosage: 2 DF, 2X/DAY (2 IN MORNING AND 2 IN AFTERNOON)
     Route: 048
  5. ELIQUIS [Concomitant]
     Active Substance: APIXABAN
     Dosage: 5 MG, 2X/DAY [ONE IN THE MORNING AND ONE IN AFTERNOON]
  6. FAMOTIDINE [Concomitant]
     Active Substance: FAMOTIDINE
     Dosage: 20 MG, 2X/DAY [1 BY MOUTH 2 TIMES A DAY]
     Route: 048
  7. DOFETILIDE [Concomitant]
     Active Substance: DOFETILIDE
     Dosage: 250 UG, 2X/DAY [ONE IN MORNING AND ONE IN AFTERNOON]

REACTIONS (7)
  - Fluid imbalance [Not Recovered/Not Resolved]
  - Malaise [Not Recovered/Not Resolved]
  - Condition aggravated [Unknown]
  - Insomnia [Not Recovered/Not Resolved]
  - Pain [Not Recovered/Not Resolved]
  - Feeling abnormal [Not Recovered/Not Resolved]
  - Gait disturbance [Not Recovered/Not Resolved]

NARRATIVE: CASE EVENT DATE: 20230109
